FAERS Safety Report 14783900 (Version 2)
Quarter: 2018Q4

REPORT INFORMATION
  Report Type: Spontaneous
  Country: US (occurrence: US)
  Receive Date: 20180420
  Receipt Date: 20181015
  Transmission Date: 20190204
  Serious: Yes (Death, Hospitalization)
  Sender: FDA-Public Use
  Company Number: US-JNJFOC-20180425680

PATIENT
  Age: 23 Year
  Sex: Female

DRUGS (1)
  1. XARELTO [Suspect]
     Active Substance: RIVAROXABAN
     Indication: DEEP VEIN THROMBOSIS
     Dosage: 10 MG AND 15 MG
     Route: 048
     Dates: start: 20140530, end: 20170523

REACTIONS (2)
  - Gastrointestinal haemorrhage [Fatal]
  - Fall [Unknown]

NARRATIVE: CASE EVENT DATE: 20170523
